FAERS Safety Report 8316363-0 (Version None)
Quarter: 2012Q2

REPORT INFORMATION
  Report Type: 
  Country: None (occurrence: None)
  Receive Date: 20120427
  Receipt Date: 20120420
  Transmission Date: 20120825
  Serious: No
  Sender: FDA-Public Use
  Company Number: US-PFIZER INC-2012098528

PATIENT
  Age: 45 Year
  Sex: Male
  Weight: 86 kg

DRUGS (2)
  1. PRISTIQ [Suspect]
     Dosage: 100 MG, 1X/DAY
     Dates: start: 20120401, end: 20120417
  2. PRISTIQ [Suspect]
     Indication: DEPRESSION
     Dosage: 50 MG, 1X/DAY
     Dates: start: 20120201, end: 20120401

REACTIONS (5)
  - NAUSEA [None]
  - EMOTIONAL DISORDER [None]
  - DEPRESSION [None]
  - DRUG INEFFECTIVE [None]
  - DIZZINESS [None]
